FAERS Safety Report 26152818 (Version 1)
Quarter: 2025Q4

REPORT INFORMATION
  Report Type: Spontaneous
  Country: US (occurrence: US)
  Receive Date: 20251214
  Receipt Date: 20251214
  Transmission Date: 20260118
  Serious: No
  Sender: BRISTOL-MYERS SQUIBB COMPANY
  Company Number: US-BRISTOL-MYERS SQUIBB COMPANY-2025-167362

PATIENT
  Age: 72 Year
  Sex: Female
  Weight: 56.7 kg

DRUGS (40)
  1. REVLIMID [Suspect]
     Active Substance: LENALIDOMIDE
     Indication: Plasma cell myeloma
     Route: 048
     Dates: start: 20241230
  2. ONDANSETRON [Concomitant]
     Active Substance: ONDANSETRON
     Indication: Product used for unknown indication
  3. ACYCLOVIR [Concomitant]
     Active Substance: ACYCLOVIR
     Indication: Product used for unknown indication
  4. ACYCLOVIR [Concomitant]
     Active Substance: ACYCLOVIR
  5. ASPIRIN [Concomitant]
     Active Substance: ASPIRIN
     Indication: Product used for unknown indication
  6. COLLAGEN ULTRA [Concomitant]
     Indication: Product used for unknown indication
  7. DEXAMETHASONE [Concomitant]
     Active Substance: DEXAMETHASONE
     Indication: Product used for unknown indication
     Route: 048
  8. FOLIC ACID [Concomitant]
     Active Substance: FOLIC ACID
     Indication: Product used for unknown indication
  9. HM VITAMIN C [Concomitant]
     Indication: Product used for unknown indication
  10. HM ZINC [Concomitant]
     Indication: Product used for unknown indication
  11. LENALIDOMIDE [Concomitant]
     Active Substance: LENALIDOMIDE
     Indication: Product used for unknown indication
     Dosage: TAKE ONE CAPSULE (10MG) BY MOUTH ONCE DAILY FOR 28 DAYS.
     Route: 048
  12. LETROZOLE [Concomitant]
     Active Substance: LETROZOLE
     Indication: Product used for unknown indication
  13. LETROZOLE [Concomitant]
     Active Substance: LETROZOLE
  14. MAGNESIUM OXIDE [Concomitant]
     Active Substance: MAGNESIUM OXIDE
     Indication: Product used for unknown indication
  15. MELATONIN [Concomitant]
     Active Substance: MELATONIN
     Indication: Product used for unknown indication
  16. MULTIVITAMIN WOMEN 50+ [Concomitant]
     Indication: Product used for unknown indication
  17. ONDANSETRON HYDROCHLORIDE [Concomitant]
     Active Substance: ONDANSETRON HYDROCHLORIDE
     Indication: Product used for unknown indication
  18. DIETARY SUPPLEMENT [Concomitant]
     Active Substance: DIETARY SUPPLEMENT
     Indication: Product used for unknown indication
  19. REVLIMID [Concomitant]
     Active Substance: LENALIDOMIDE
     Indication: Product used for unknown indication
     Dosage: TAKE 1 CAPSULE (20 MG) BY MOUTH ONCE DAILY FOR 14 DAYS OF EACH 21 DAYS CYCLE.
     Route: 048
  20. REVLIMID [Concomitant]
     Active Substance: LENALIDOMIDE
     Dosage: TAKE 1 CAPSULE (20 MG) BY MOUTH ONCE DAILY FOR 14 DAYS OF EACH 21 DAYS CYCLE.
     Route: 048
     Dates: start: 20240307
  21. REVLIMID [Concomitant]
     Active Substance: LENALIDOMIDE
     Dosage: TAKE 1 CAPSULE (20 MG) BY MOUTH ONCE DAILY FOR 14 DAYS OF EACH 21 DAYS CYCLE.
     Route: 048
     Dates: start: 20240509
  22. REVLIMID [Concomitant]
     Active Substance: LENALIDOMIDE
     Dosage: TAKE ONE CAPSULE (10MG) BY MOUTH ONCE DAILY FOR 28 DAYS.
     Route: 048
     Dates: start: 20240926
  23. REVLIMID [Concomitant]
     Active Substance: LENALIDOMIDE
     Dosage: TAKE 1 CAPSULE (10MG) BY MOUTH ONCE DAILY FOR 28 DAYS.
     Route: 048
     Dates: start: 20241024
  24. REVLIMID [Concomitant]
     Active Substance: LENALIDOMIDE
     Dosage: TAKE ONE CAPSULE (10MG) BY MOUTH ONCE DAILY FOR 28 DAYS.
     Route: 048
     Dates: start: 20241121
  25. REVLIMID [Concomitant]
     Active Substance: LENALIDOMIDE
     Dosage: TAKE 1 CAPSULE BY MOUTH ONCE DAILY FOR 28 DAYS.
     Route: 048
     Dates: start: 20241230
  26. REVLIMID [Concomitant]
     Active Substance: LENALIDOMIDE
     Dosage: TAKE ONE CAPSULE (10MG) BY MOUTH ONCE DAILY FOR 28 DAYS.
     Route: 048
     Dates: start: 20250123
  27. REVLIMID [Concomitant]
     Active Substance: LENALIDOMIDE
     Dosage: TAKE ONE CAPSULE (10MG) BY MOUTH ONCE DAILY FOR 28 DAYS
     Route: 048
     Dates: start: 20250219
  28. REVLIMID [Concomitant]
     Active Substance: LENALIDOMIDE
     Dosage: TAKE 1 CAPSULE (10MG) BY MOUTH ONCE DAILY FOR 28 DAYS.
     Route: 048
     Dates: start: 20250325
  29. REVLIMID [Concomitant]
     Active Substance: LENALIDOMIDE
     Dosage: TAKE 1 CAPSULE (10MG) BY MOUTH ONCE DAILY FOR 28 DAYS.
     Route: 048
     Dates: start: 20250417
  30. REVLIMID [Concomitant]
     Active Substance: LENALIDOMIDE
     Dosage: TAKE 1 CAPSULE (10MG) BY MOUTH ONCE DAILY FOR 28 DAYS.
     Route: 048
     Dates: start: 20250422
  31. REVLIMID [Concomitant]
     Active Substance: LENALIDOMIDE
     Dosage: TAKE 1 CAPSULE (10MG) BY MOUTH ONCE DAILY FOR 28 DAYS.
     Route: 048
     Dates: start: 20250514
  32. REVLIMID [Concomitant]
     Active Substance: LENALIDOMIDE
     Dosage: TAKE 1 CAPSULE (10MG) BY MOUTH ONCE DAILY FOR 28 DAYS CYCLE.
     Route: 048
     Dates: start: 20250519
  33. REVLIMID [Concomitant]
     Active Substance: LENALIDOMIDE
     Dosage: TAKE 1 CAPSULE (10MG) BY MOUTH ONCE DAILY FOR 28 DAYS CYCLE.
     Route: 048
     Dates: start: 20250612
  34. REVLIMID [Concomitant]
     Active Substance: LENALIDOMIDE
     Dosage: TAKE ONE CAPSULE (10MG) BY MOUTH ONCE DAILY FOR 28 DAYS
     Route: 048
     Dates: start: 20250616
  35. REVLIMID [Concomitant]
     Active Substance: LENALIDOMIDE
     Dosage: TAKE ONE CAPSULE (10MG) BY MOUTH ONCE DAILY FOR 28 DAYS
     Route: 048
     Dates: start: 20250714
  36. REVLIMID [Concomitant]
     Active Substance: LENALIDOMIDE
     Dosage: TAKE ONE CAPSULE (10MG) BY MOUTH ONCE DAILY FOR 28 DAYS
     Route: 048
     Dates: start: 20250812
  37. REVLIMID [Concomitant]
     Active Substance: LENALIDOMIDE
     Dosage: TAKE ONE CAPSULE (10MG) BY MOUTH ONCE DAILY FOR 28 DAYS
     Route: 048
     Dates: start: 20250904
  38. VITAMIN B12 [Concomitant]
     Active Substance: CYANOCOBALAMIN
     Indication: Product used for unknown indication
     Route: 048
  39. VITAMIN B12 [Concomitant]
     Active Substance: CYANOCOBALAMIN
  40. VITAMIN C [Concomitant]
     Active Substance: ASCORBIC ACID
     Indication: Product used for unknown indication
     Route: 048

REACTIONS (3)
  - Paraesthesia [Recovering/Resolving]
  - Muscle spasms [Recovering/Resolving]
  - Musculoskeletal stiffness [Recovering/Resolving]

NARRATIVE: CASE EVENT DATE: 20251102
